FAERS Safety Report 4600088-9 (Version None)
Quarter: 2005Q1

REPORT INFORMATION
  Report Type: 
  Country: None (occurrence: None)
  Receive Date: 20050303
  Receipt Date: 20050211
  Transmission Date: 20050727
  Serious: No
  Sender: FDA-Public Use
  Company Number: A01200500820

PATIENT
  Age: 64 Year
  Sex: Male

DRUGS (1)
  1. (ALFUZOSIN) - TABLET PR - 10 MG [Suspect]
     Indication: PROSTATISM
     Dosage: 10 MG OD
     Route: 048
     Dates: start: 20040201, end: 20050208

REACTIONS (1)
  - NEUTROPENIA [None]
